FAERS Safety Report 24780950 (Version 1)
Quarter: 2024Q4

REPORT INFORMATION
  Report Type: Spontaneous
  Country: US (occurrence: US)
  Receive Date: 20241227
  Receipt Date: 20241227
  Transmission Date: 20250115
  Serious: No
  Sender: ALEXION PHARMACEUTICALS
  Company Number: US-AstraZeneca-CH-00773758AP

PATIENT

DRUGS (8)
  1. BYETTA [Suspect]
     Active Substance: EXENATIDE
     Route: 065
  2. BYETTA [Suspect]
     Active Substance: EXENATIDE
     Route: 065
  3. BYETTA [Suspect]
     Active Substance: EXENATIDE
     Route: 065
  4. BYETTA [Suspect]
     Active Substance: EXENATIDE
     Route: 065
  5. BYDUREON [Suspect]
     Active Substance: EXENATIDE
     Route: 065
  6. BYDUREON [Suspect]
     Active Substance: EXENATIDE
     Route: 065
  7. BYDUREON [Suspect]
     Active Substance: EXENATIDE
     Route: 065
  8. BYDUREON [Suspect]
     Active Substance: EXENATIDE
     Route: 065

REACTIONS (8)
  - Device alarm issue [Unknown]
  - Complication of device removal [Unknown]
  - Blood glucose increased [Unknown]
  - Blood glucose fluctuation [Unknown]
  - Nausea [Unknown]
  - Blood glucose abnormal [Unknown]
  - Product dose omission issue [Unknown]
  - Glycosylated haemoglobin [Unknown]
